FAERS Safety Report 4320679-2 (Version None)
Quarter: 2004Q1

REPORT INFORMATION
  Report Type: 
  Country: None (occurrence: None)
  Receive Date: 20040318
  Receipt Date: 20040305
  Transmission Date: 20041129
  Serious: Yes (Death)
  Sender: FDA-Public Use
  Company Number: D01200400468

PATIENT
  Age: 43 Year
  Sex: Male

DRUGS (13)
  1. (SR57746) [Suspect]
     Indication: PROPHYLAXIS
     Dosage: 1 MG QD ORAL
     Route: 048
     Dates: start: 20031103, end: 20040130
  2. (OXALIPLATIN) [Suspect]
     Indication: CHEMOTHERAPY
     Dosage: 400 MG/M2 AS IV BOLUS THEN 600 MG/M2 AS 22 HOURS CONTINUOUS INFUSION D1-D2 Q2W INTRAVENOUS NOS
     Route: 042
     Dates: start: 20040126, end: 20040126
  3. (OXALIPLATIN) [Suspect]
     Indication: COLORECTAL CANCER METASTATIC
     Dosage: 400 MG/M2 AS IV BOLUS THEN 600 MG/M2 AS 22 HOURS CONTINUOUS INFUSION D1-D2 Q2W INTRAVENOUS NOS
     Route: 042
     Dates: start: 20040126, end: 20040126
  4. (OXALIPLATIN) [Suspect]
     Indication: NEUROTOXICITY
     Dosage: 400 MG/M2 AS IV BOLUS THEN 600 MG/M2 AS 22 HOURS CONTINUOUS INFUSION D1-D2 Q2W INTRAVENOUS NOS
     Route: 042
     Dates: start: 20040126, end: 20040126
  5. FLUOROURACIL [Suspect]
     Dosage: 200 MG/M2 AS 2 HOURS INFUSION ON D1-D2 Q2W, INTRAVENOUS NOS
     Route: 042
     Dates: start: 20040126, end: 20040127
  6. CIPROFLOXACIN [Concomitant]
  7. DEXAMETHASONE [Concomitant]
  8. DOMPERIDONE [Concomitant]
  9. GRANISETRON [Concomitant]
  10. RANITIDINE [Concomitant]
  11. LOPERAMIDE HCL [Concomitant]
  12. CITALOPRAM [Concomitant]
  13. LEUCOVORIN CALCIUM [Suspect]
     Dosage: 200 MG/M2 INTRAVENOUS NOS
     Route: 042
     Dates: start: 20040126, end: 20040127

REACTIONS (7)
  - CARDIAC FAILURE [None]
  - CARDIOVASCULAR DISORDER [None]
  - CHEST PAIN [None]
  - HYPOTENSION [None]
  - OXYGEN SATURATION DECREASED [None]
  - PULMONARY EMBOLISM [None]
  - TACHYPNOEA [None]
